FAERS Safety Report 6019947-8 (Version None)
Quarter: 2008Q4

REPORT INFORMATION
  Report Type: 
  Country: None (occurrence: None)
  Receive Date: 20081223
  Receipt Date: 20081211
  Transmission Date: 20090506
  Serious: Yes (Death)
  Sender: FDA-Public Use
  Company Number: 038591

PATIENT
  Age: 61 Year
  Sex: Female

DRUGS (2)
  1. VERAPAMIL [Suspect]
  2. CALCIUM CHLORIDE [Concomitant]

REACTIONS (2)
  - HYPERCALCAEMIA [None]
  - OVERDOSE [None]
